FAERS Safety Report 4536951-7 (Version None)
Quarter: 2004Q4

REPORT INFORMATION
  Report Type: 
  Country: None (occurrence: None)
  Receive Date: 20041220
  Receipt Date: 20041209
  Transmission Date: 20050328
  Serious: Yes (Hospitalization, Other)
  Sender: FDA-Public Use
  Company Number: STA-AE-04-MTX-580

PATIENT
  Age: 56 Year
  Sex: Female

DRUGS (4)
  1. METHOTREXATE [Suspect]
     Indication: RHEUMATOID ARTHRITIS
     Dosage: 15 MG/WEEK, ORAL
     Route: 048
     Dates: start: 20040101, end: 20041104
  2. BLINDED THERAPY FOR TEMSIROLIMUS (BLINDED THERAPY FOR TEMSIROLIMUS) [Suspect]
     Indication: RHEUMATOID ARTHRITIS
     Dosage: BLINDED THERAPY, ORAL
     Route: 048
     Dates: start: 20040720, end: 20041018
  3. PREDNISOLONE [Concomitant]
  4. IBUPROFEN [Concomitant]

REACTIONS (2)
  - ERYSIPELAS [None]
  - PYREXIA [None]
